FAERS Safety Report 5187036-0 (Version None)
Quarter: 2006Q4

REPORT INFORMATION
  Report Type: 
  Country: None (occurrence: None)
  Receive Date: 20061214
  Receipt Date: 20061201
  Transmission Date: 20070319
  Serious: Yes (Other)
  Sender: FDA-Public Use
  Company Number: 2006121094

PATIENT
  Age: 48 Year
  Sex: Female

DRUGS (4)
  1. CELEBREX [Suspect]
     Indication: TENDONITIS
     Dosage: 200 MG (100 MG, 2 IN 1 D), ORAL
     Route: 048
     Dates: start: 20050101
  2. ETODOLAC [Suspect]
     Indication: OSTEOARTHRITIS
     Dosage: ORAL
     Route: 048
  3. ALLERGY MEDICATION (ALLERGY MEDICATION) [Concomitant]
  4. DOLAMIN (AMMONIUM SULFATE, BENZYL ANCOHOL, SODIUM CHLORIDE) [Concomitant]

REACTIONS (4)
  - ABDOMINAL DISCOMFORT [None]
  - DRUG INEFFECTIVE [None]
  - INTERVERTEBRAL DISC PROTRUSION [None]
  - OSTEOARTHRITIS [None]
